FAERS Safety Report 18259259 (Version 2)
Quarter: 2020Q3

REPORT INFORMATION
  Report Type: Spontaneous
  Country: IT (occurrence: IT)
  Receive Date: 20200911
  Receipt Date: 20200921
  Transmission Date: 20201103
  Serious: Yes (Other)
  Sender: FDA-Public Use
  Company Number: IT-JNJFOC-20200845741

PATIENT
  Age: 28 Year
  Sex: Female

DRUGS (1)
  1. INFLIXIMAB, RECOMBINANT [Suspect]
     Active Substance: INFLIXIMAB
     Indication: SPONDYLITIS
     Dosage: UNK
     Route: 042

REACTIONS (4)
  - Demyelination [Not Recovered/Not Resolved]
  - Off label use [Unknown]
  - Clinically isolated syndrome [Recovering/Resolving]
  - Product use in unapproved indication [Unknown]
